FAERS Safety Report 6411642-6 (Version None)
Quarter: 2009Q4

REPORT INFORMATION
  Report Type: 
  Country: None (occurrence: None)
  Receive Date: 20091020
  Receipt Date: 20091007
  Transmission Date: 20100525
  Serious: Yes (Hospitalization)
  Sender: FDA-Public Use
  Company Number: 2009AC000099

PATIENT
  Age: 82 Year
  Sex: Female

DRUGS (7)
  1. DIGOXIN [Suspect]
     Dosage: PO
     Route: 048
  2. KEFLEX [Concomitant]
  3. ATENOLOL [Concomitant]
  4. LASIX [Concomitant]
  5. XOPENEX [Concomitant]
  6. ASPIRIN [Concomitant]
  7. FAMOTIDINE [Concomitant]

REACTIONS (19)
  - AMNESIA [None]
  - ANHEDONIA [None]
  - BRONCHITIS [None]
  - CARDIAC FAILURE CONGESTIVE [None]
  - CEREBROVASCULAR ACCIDENT [None]
  - DIZZINESS [None]
  - ECONOMIC PROBLEM [None]
  - EMOTIONAL DISORDER [None]
  - EXPOSURE TO TOXIC AGENT [None]
  - FALL [None]
  - FEELING ABNORMAL [None]
  - GASTRITIS [None]
  - LACUNAR INFARCTION [None]
  - MENTAL DISORDER [None]
  - MULTIPLE INJURIES [None]
  - PAIN [None]
  - SUDDEN HEARING LOSS [None]
  - TINNITUS [None]
  - UPPER RESPIRATORY TRACT INFECTION [None]
